FAERS Safety Report 20814392 (Version 1)
Quarter: 2022Q2

REPORT INFORMATION
  Report Type: Spontaneous
  Country: US (occurrence: US)
  Receive Date: 20220511
  Receipt Date: 20220511
  Transmission Date: 20220721
  Serious: Yes (Other)
  Sender: FDA-Public Use
  Company Number: US-AMGEN-USASP2022077215

PATIENT

DRUGS (1)
  1. BEVACIZUMAB [Suspect]
     Active Substance: BEVACIZUMAB
     Indication: Meningioma
     Dosage: UNK
     Route: 065

REACTIONS (10)
  - Meningioma [Unknown]
  - Pulmonary embolism [Unknown]
  - Haemorrhage [Unknown]
  - Aphasia [Unknown]
  - Off label use [Unknown]
  - Decreased appetite [Unknown]
  - Proteinuria [Unknown]
  - Hypertension [Unknown]
  - Nausea [Unknown]
  - Fatigue [Unknown]
